FAERS Safety Report 9453103 (Version 1)
Quarter: 2013Q3

REPORT INFORMATION
  Report Type: Report from Study
  Country: CO (occurrence: CO)
  Receive Date: 20130812
  Receipt Date: 20130812
  Transmission Date: 20140515
  Serious: Yes (Death)
  Sender: FDA-Public Use
  Company Number: CO-SANOFI-AVENTIS-2013SA079104

PATIENT
  Age: 49 Year
  Sex: Male

DRUGS (1)
  1. LANTUS [Suspect]
     Indication: DIABETES MELLITUS
     Dosage: TREATMENT START DATE:JUN-2013 DOSE:15 UNIT(S)
     Route: 058
     Dates: start: 201306, end: 20130625

REACTIONS (2)
  - Pancreatic carcinoma [Fatal]
  - Hyperglycaemia [Not Recovered/Not Resolved]
